FAERS Safety Report 16942128 (Version 1)
Quarter: 2019Q4

REPORT INFORMATION
  Report Type: Spontaneous
  Country: GB (occurrence: GB)
  Receive Date: 20191021
  Receipt Date: 20191021
  Transmission Date: 20200122
  Serious: Yes (Hospitalization, Other)
  Sender: FDA-Public Use
  Company Number: GB-MYLANLABS-2019M1098530

PATIENT
  Age: 30 Year
  Sex: Female
  Weight: 60 kg

DRUGS (5)
  1. DEXAMFETAMINE [Concomitant]
     Active Substance: DEXTROAMPHETAMINE
     Dosage: UNK
  2. MIRTAZAPINE. [Suspect]
     Active Substance: MIRTAZAPINE
     Indication: INSOMNIA
     Dosage: 15-30MG
     Route: 048
     Dates: start: 20171001, end: 20190801
  3. LYMECYCLINE [Concomitant]
     Active Substance: LYMECYCLINE
     Dosage: UNK
  4. LEVOTHYROXINE. [Concomitant]
     Active Substance: LEVOTHYROXINE
     Dosage: UNK
  5. ACICLOVIR [Concomitant]
     Active Substance: ACYCLOVIR
     Dosage: UNK

REACTIONS (2)
  - Syncope [Recovered/Resolved]
  - Off label use [Unknown]

NARRATIVE: CASE EVENT DATE: 20181115
